FAERS Safety Report 25670624 (Version 2)
Quarter: 2025Q3

REPORT INFORMATION
  Report Type: Spontaneous
  Country: RU (occurrence: RU)
  Receive Date: 20250812
  Receipt Date: 20250822
  Transmission Date: 20251021
  Serious: Yes (Other)
  Sender: MACLEODS
  Company Number: RU-MACLEODS PHARMA-MAC2025054585

PATIENT

DRUGS (6)
  1. LEVOTHYROXINE [Suspect]
     Active Substance: LEVOTHYROXINE
     Indication: Hypothyroidism
     Dosage: 12.5 MICROGRAM/DAY 1 YEAR 2 MONTHS
     Route: 065
  2. LEVOTHYROXINE [Suspect]
     Active Substance: LEVOTHYROXINE
     Dosage: 37.5 MICROGRAM/DAY 1 YEAR 3 MONTHS
     Route: 065
  3. LEVOTHYROXINE [Suspect]
     Active Substance: LEVOTHYROXINE
     Dosage: 50 MICROGRAM/DAY 1 YEAR 4 MONTHS
     Route: 065
  4. LEVOTHYROXINE [Suspect]
     Active Substance: LEVOTHYROXINE
     Dosage: 25 MICROGRAM/DAY 1 YEAR 2 MONTHS 21 DAYS
     Route: 065
  5. LEVOTHYROXINE [Suspect]
     Active Substance: LEVOTHYROXINE
     Dosage: 50 MICROGRAM/DAY 1 YEAR 7 MONTHS
     Route: 065
  6. LEVOTHYROXINE [Suspect]
     Active Substance: LEVOTHYROXINE
     Dosage: 37.5 MICROGRAM/DAY 1 YEAR 10 MONTHS
     Route: 065

REACTIONS (2)
  - Hyperthyroidism [Unknown]
  - Thyroxine increased [Unknown]
